FAERS Safety Report 4969430-3 (Version None)
Quarter: 2006Q2

REPORT INFORMATION
  Report Type: 
  Country: None (occurrence: None)
  Receive Date: 20060406
  Receipt Date: 20060328
  Transmission Date: 20061013
  Serious: Yes (Hospitalization, Other)
  Sender: FDA-Public Use
  Company Number: 200610392BCC

PATIENT
  Age: 59 Year
  Sex: Male
  Weight: 58.9676 kg

DRUGS (2)
  1. ALEVE (CAPLET) [Suspect]
     Indication: PAIN IN EXTREMITY
     Dosage: SEE IMAGE, ORAL
     Route: 048
     Dates: start: 20060122
  2. ALEVE (CAPLET) [Suspect]
     Indication: PAIN IN EXTREMITY
     Dosage: SEE IMAGE, ORAL
     Route: 048
     Dates: start: 20060123

REACTIONS (3)
  - BLOOD PRESSURE INCREASED [None]
  - CHEST PAIN [None]
  - PAIN IN EXTREMITY [None]
